FAERS Safety Report 4637995-7 (Version None)
Quarter: 2005Q2

REPORT INFORMATION
  Report Type: 
  Country: None (occurrence: None)
  Receive Date: 20050415
  Receipt Date: 20050329
  Transmission Date: 20051028
  Serious: Yes (Hospitalization)
  Sender: FDA-Public Use
  Company Number: USA050394463

PATIENT
  Age: 69 Year
  Sex: Female

DRUGS (3)
  1. HUMULIN-HUMAN INSULIN (RDNA) : 30% REGULAR, 70% NPH (H [Suspect]
     Indication: DIABETES MELLITUS
     Dosage: 75 U DAY
  2. FORTEO [Suspect]
     Indication: OSTEOPOROSIS
     Dosage: 20 UG
     Dates: start: 20050728
  3. ACTOS [Concomitant]

REACTIONS (12)
  - ARTHRITIS [None]
  - BLOOD CHOLESTEROL INCREASED [None]
  - CATARACT [None]
  - FALL [None]
  - FOOT FRACTURE [None]
  - IMPAIRED HEALING [None]
  - OSTEOPOROSIS [None]
  - PHARMACEUTICAL PRODUCT COMPLAINT [None]
  - POST PROCEDURAL COMPLICATION [None]
  - STRESS FRACTURE [None]
  - UPPER LIMB FRACTURE [None]
  - WEIGHT INCREASED [None]
